FAERS Safety Report 5079329-2 (Version None)
Quarter: 2006Q3

REPORT INFORMATION
  Report Type: 
  Country: None (occurrence: None)
  Receive Date: 20060814
  Receipt Date: 20060730
  Transmission Date: 20061208
  Serious: Yes (Hospitalization, Other)
  Sender: FDA-Public Use
  Company Number: US-AMGEN-STX188367

PATIENT
  Sex: Female

DRUGS (2)
  1. ENBREL [Suspect]
     Indication: PSORIASIS
     Route: 058
     Dates: start: 20060424
  2. VANCOMYCIN [Concomitant]
     Dates: start: 20060101

REACTIONS (4)
  - DRUG HYPERSENSITIVITY [None]
  - INCISION SITE INFECTION [None]
  - INTERVERTEBRAL DISC OPERATION [None]
  - POSTOPERATIVE WOUND INFECTION [None]
